FAERS Safety Report 10175096 (Version 1)
Quarter: 2014Q2

REPORT INFORMATION
  Report Type: Spontaneous
  Country: US (occurrence: US)
  Receive Date: 20140515
  Receipt Date: 20140515
  Transmission Date: 20141212
  Serious: Yes (Other)
  Sender: FDA-Public Use
  Company Number: CHPA2014US006436

PATIENT
  Age: 64 Year
  Sex: Female

DRUGS (6)
  1. PREVACID 24HR 15MG [Suspect]
     Indication: ULCER
     Dosage: 30 MG, QD
     Route: 048
     Dates: start: 20140305
  2. PREVACID 24HR 15MG [Suspect]
     Indication: INCORRECT DOSE ADMINISTERED
  3. PREVACID 24HR 15MG [Suspect]
     Indication: OFF LABEL USE
  4. IBUPROFEN [Suspect]
     Indication: ARTHROPATHY
     Dosage: 3 DF, TID
  5. IBUPROFEN [Suspect]
     Indication: OFF LABEL USE
  6. ZANTAC [Concomitant]
     Indication: ULCER
     Dosage: 1 DF, QD
     Route: 048
     Dates: start: 20140305

REACTIONS (7)
  - Ulcer [Recovering/Resolving]
  - Hepatic cyst [Unknown]
  - Chest pain [Recovered/Resolved]
  - Feeling jittery [Unknown]
  - Eructation [Not Recovered/Not Resolved]
  - Incorrect drug administration duration [Unknown]
  - Therapeutic response changed [Unknown]
